FAERS Safety Report 7278126-7 (Version None)
Quarter: 2011Q1

REPORT INFORMATION
  Report Type: 
  Country: None (occurrence: None)
  Receive Date: 20110207
  Receipt Date: 20110203
  Transmission Date: 20110831
  Serious: Yes (Hospitalization)
  Sender: FDA-Public Use
  Company Number: A0779284A

PATIENT
  Age: 56 Year
  Sex: Male
  Weight: 72.7 kg

DRUGS (2)
  1. GLUCOPHAGE [Concomitant]
     Route: 048
  2. AVANDIA [Suspect]
     Dosage: 8MG PER DAY
     Route: 048
     Dates: start: 20001001, end: 20070715

REACTIONS (11)
  - CONFUSIONAL STATE [None]
  - METAMORPHOPSIA [None]
  - ANXIETY [None]
  - SPEECH DISORDER [None]
  - DYSMORPHISM [None]
  - HYPOAESTHESIA [None]
  - DIZZINESS [None]
  - CEREBROVASCULAR ACCIDENT [None]
  - HEADACHE [None]
  - DEPRESSION [None]
  - ACTIVITIES OF DAILY LIVING IMPAIRED [None]
